FAERS Safety Report 20645625 (Version 1)
Quarter: 2022Q1

REPORT INFORMATION
  Report Type: Spontaneous
  Country: ID (occurrence: ID)
  Receive Date: 20220328
  Receipt Date: 20220328
  Transmission Date: 20220424
  Serious: No
  Sender: FDA-Public Use
  Company Number: ID-LUPIN PHARMACEUTICALS INC.-2022-04288

PATIENT
  Age: 35 Year
  Sex: Female

DRUGS (5)
  1. CEFADROXIL [Suspect]
     Active Substance: CEFADROXIL
     Indication: Pneumonia
     Dosage: 500 MG, BID
     Route: 065
  2. PYRIDOSTIGMINE [Suspect]
     Active Substance: PYRIDOSTIGMINE
     Indication: Myasthenia gravis
     Dosage: 60 MG SIX TIMES A DAY
     Route: 065
  3. ACETAMINOPHEN [Suspect]
     Active Substance: ACETAMINOPHEN
     Indication: Myasthenia gravis
     Dosage: 500 MG, TID
     Route: 065
  4. VENTOLIN [Suspect]
     Active Substance: ALBUTEROL SULFATE
     Indication: Pneumonia
     Dosage: UNK
  5. AMBROXOL [Suspect]
     Active Substance: AMBROXOL
     Indication: Pneumonia
     Dosage: 30 MG, TID
     Route: 065

REACTIONS (1)
  - Exposure during pregnancy [Unknown]
